FAERS Safety Report 5659997-4 (Version None)
Quarter: 2008Q1

REPORT INFORMATION
  Report Type: 
  Country: None (occurrence: None)
  Receive Date: 20080306
  Receipt Date: 20080226
  Transmission Date: 20080703
  Serious: Yes (Other)
  Sender: FDA-Public Use
  Company Number: 2007BI025960

PATIENT
  Age: 31 Year
  Sex: Female
  Weight: 54.4316 kg

DRUGS (11)
  1. TYSABRI [Suspect]
     Indication: MULTIPLE SCLEROSIS
     Dosage: 300 MG; QM; IV
     Route: 042
     Dates: start: 20061207
  2. ZOLOFT [Concomitant]
  3. NAMENDA [Concomitant]
  4. LAMICTAL [Concomitant]
  5. FLONASE [Concomitant]
  6. SINGULAIR [Concomitant]
  7. ADVAIR DISKUS 100/50 [Concomitant]
  8. PHENERGAN HCL [Concomitant]
  9. BACLOFEN [Concomitant]
  10. ALBUTEROL [Concomitant]
  11. LUNESTA [Concomitant]

REACTIONS (3)
  - ASTHMA [None]
  - CONVULSION [None]
  - STRESS [None]
